FAERS Safety Report 22083557 (Version 4)
Quarter: 2023Q2

REPORT INFORMATION
  Report Type: Other
  Country: CA (occurrence: None)
  Receive Date: 20230310
  Receipt Date: 20230426
  Transmission Date: 20230722
  Serious: No
  Sender: FDA-Public Use
  Company Number: CA-ROCHE-2706395

PATIENT
  Sex: Male

DRUGS (8)
  1. OCREVUS [Suspect]
     Active Substance: OCRELIZUMAB
     Indication: Relapsing-remitting multiple sclerosis
     Dosage: THEN 600 MG EVERY 6 MONTH
     Route: 042
     Dates: start: 20200923
  2. MYRBETRIQ [Concomitant]
     Active Substance: MIRABEGRON
  3. VENLAFAXINE [Concomitant]
     Active Substance: VENLAFAXINE HYDROCHLORIDE
  4. INDOMETHACIN [Concomitant]
     Active Substance: INDOMETHACIN
  5. MORPHINE [Concomitant]
     Active Substance: MORPHINE
     Dosage: NEEDED FOR PAIN AND THAT IS FOR WHEN THE NECK ACTS UP
  6. BACLOFEN [Concomitant]
     Active Substance: BACLOFEN
  7. ACETAMINOPHEN [Concomitant]
     Active Substance: ACETAMINOPHEN
     Dosage: 650 MG?PO 30-60 MIN PRIOR TO EACH INFUSION
     Route: 048
  8. BOTOX [Concomitant]
     Active Substance: ONABOTULINUMTOXINA

REACTIONS (8)
  - Burning sensation [Not Recovered/Not Resolved]
  - Cough [Not Recovered/Not Resolved]
  - Prostatic disorder [Unknown]
  - Balance disorder [Unknown]
  - Gait disturbance [Not Recovered/Not Resolved]
  - Urinary incontinence [Not Recovered/Not Resolved]
  - Micturition urgency [Not Recovered/Not Resolved]
  - COVID-19 [Recovered/Resolved]
